FAERS Safety Report 5841703-1 (Version None)
Quarter: 2008Q3

REPORT INFORMATION
  Report Type: 
  Country: None (occurrence: None)
  Receive Date: 20080812
  Receipt Date: 20080801
  Transmission Date: 20090109
  Serious: Yes (Hospitalization)
  Sender: FDA-Public Use
  Company Number: FR-JNJFOC-20080800544

PATIENT
  Age: 54 Year
  Sex: Female

DRUGS (6)
  1. REMICADE [Suspect]
     Dosage: 14 INFUSIONS
     Route: 042
  2. REMICADE [Suspect]
     Indication: RHEUMATOID ARTHRITIS
     Dosage: 14 INFUSIONS
     Route: 042
  3. METHOTREXATE [Concomitant]
     Dosage: 14 INFUSIONS
  4. BIPROFENID [Concomitant]
  5. MOPRAL [Concomitant]
  6. FOLIC ACID [Concomitant]

REACTIONS (9)
  - COUGH [None]
  - ERYTHEMA [None]
  - HOT FLUSH [None]
  - HYPERHIDROSIS [None]
  - HYPERSENSITIVITY [None]
  - INFUSION RELATED REACTION [None]
  - OXYGEN SATURATION DECREASED [None]
  - SENSORY DISTURBANCE [None]
  - THROAT IRRITATION [None]
